FAERS Safety Report 20341328 (Version 2)
Quarter: 2022Q1

REPORT INFORMATION
  Report Type: Spontaneous
  Country: US (occurrence: US)
  Receive Date: 20220117
  Receipt Date: 20220210
  Transmission Date: 20220423
  Serious: No
  Sender: FDA-Public Use
  Company Number: US-GW PHARMA-202201USGW00153

PATIENT
  Sex: Female

DRUGS (2)
  1. EPIDIOLEX [Suspect]
     Active Substance: CANNABIDIOL
     Indication: Lennox-Gastaut syndrome
     Dosage: UNK, DOSE INCREASED
     Route: 048
     Dates: start: 20211208
  2. EPIDIOLEX [Suspect]
     Active Substance: CANNABIDIOL
     Dosage: 1500 MILLIGRAM, FREQUENCY NOT REPORTED
     Route: 048
     Dates: start: 20220112

REACTIONS (3)
  - Initial insomnia [Unknown]
  - Cough [Not Recovered/Not Resolved]
  - Decreased appetite [Unknown]
